FAERS Safety Report 9746780 (Version 1)
Quarter: 2013Q4

REPORT INFORMATION
  Report Type: Spontaneous
  Country: US (occurrence: US)
  Receive Date: 20131211
  Receipt Date: 20131211
  Transmission Date: 20140711
  Serious: Yes (Other)
  Sender: FDA-Public Use
  Company Number: PHHY2013US142646

PATIENT
  Age: 63 Year
  Sex: Male

DRUGS (5)
  1. CLOPIDOGREL [Suspect]
     Dosage: 75 MG DAILY
  2. VITAMIN E [Suspect]
     Dosage: 1000 IU PER DAY
  3. ACETYLSALICYLIC ACID [Suspect]
     Dosage: 325 MG, DAILY
  4. FISH OIL [Suspect]
  5. CONTINUOUS POSITIVE AIRWAY PRESSURE [Suspect]

REACTIONS (2)
  - Periorbital haemorrhage [Recovered/Resolved]
  - Contusion [Recovered/Resolved]
